FAERS Safety Report 5770969-1 (Version None)
Quarter: 2008Q2

REPORT INFORMATION
  Report Type: 
  Country: None (occurrence: None)
  Receive Date: 20080613
  Receipt Date: 20080522
  Transmission Date: 20081010
  Serious: No
  Sender: FDA-Public Use
  Company Number: US-ABBOTT-08P-163-0452894-00

PATIENT
  Sex: Male
  Weight: 104.42 kg

DRUGS (1)
  1. HUMIRA [Suspect]
     Indication: ANKYLOSING SPONDYLITIS
     Route: 058
     Dates: start: 20080101, end: 20080101

REACTIONS (2)
  - DRUG INEFFECTIVE [None]
  - RASH MACULAR [None]
